FAERS Safety Report 7564380-0 (Version None)
Quarter: 2011Q2

REPORT INFORMATION
  Report Type: 
  Country: None (occurrence: None)
  Receive Date: 20110622
  Receipt Date: 20110609
  Transmission Date: 20111010
  Serious: Yes (Other)
  Sender: FDA-Public Use
  Company Number: PHHY2011BR16310

PATIENT
  Sex: Female

DRUGS (5)
  1. EXFORGE [Suspect]
     Dosage: 320 MG OF VALSARTAN AND 5 OG OF AMLODIPDINE
     Route: 048
  2. DIURISA [Concomitant]
     Dosage: 25 MG, UNK
  3. TYLENOL-500 [Concomitant]
     Dosage: 50 MG, UNK
  4. PROCOMVAX [Concomitant]
  5. CITALOPRAM HYDROBROMIDE [Concomitant]

REACTIONS (7)
  - GAIT DISTURBANCE [None]
  - EYE DISORDER [None]
  - PARKINSON'S DISEASE [None]
  - CEREBROVASCULAR ACCIDENT [None]
  - DIZZINESS [None]
  - MALAISE [None]
  - MEMORY IMPAIRMENT [None]
